FAERS Safety Report 25045993 (Version 1)
Quarter: 2025Q1

REPORT INFORMATION
  Report Type: Spontaneous
  Country: US (occurrence: None)
  Receive Date: 20250305
  Receipt Date: 20250305
  Transmission Date: 20250408
  Serious: Yes (Life-Threatening, Hospitalization)
  Sender: FDA-CTU
  Company Number: None

PATIENT
  Age: 4 Month
  Sex: Male
  Weight: 6.124 kg

DRUGS (1)
  1. ALKINDI SPRINKLE [Suspect]
     Active Substance: HYDROCORTISONE
     Indication: Drug therapy
     Dosage: 1 MG 3 TIMES A DAY ORAL
     Route: 048
     Dates: start: 20250213, end: 20250218

REACTIONS (8)
  - Metabolic acidosis [None]
  - Cold sweat [None]
  - Hyperhidrosis [None]
  - Discomfort [None]
  - Faeces discoloured [None]
  - Hyponatraemia [None]
  - Vomiting [None]
  - Hyperkalaemia [None]

NARRATIVE: CASE EVENT DATE: 20250219
